FAERS Safety Report 4832468-0 (Version None)
Quarter: 2005Q4

REPORT INFORMATION
  Report Type: 
  Country: None (occurrence: None)
  Receive Date: 20051121
  Receipt Date: 20050223
  Transmission Date: 20060501
  Serious: No
  Sender: FDA-Public Use
  Company Number: US-BRISTOL-MYERS SQUIBB COMPANY-12873162

PATIENT
  Age: 58 Year
  Sex: Female
  Weight: 113 kg

DRUGS (14)
  1. VEPESID [Suspect]
     Indication: MANTLE CELL LYMPHOMA
     Dates: start: 20050218, end: 20050218
  2. RITUXAN [Concomitant]
  3. PREDNISONE [Concomitant]
  4. VINCRISTINE [Concomitant]
  5. CYCLOPHOSPHAMIDE [Concomitant]
  6. DOXORUBICIN HCL [Concomitant]
  7. GLIPIZIDE [Concomitant]
  8. HYDROCHLOROTHIAZIDE [Concomitant]
  9. PROTONIX [Concomitant]
  10. ZANTAC [Concomitant]
  11. SENOKOT [Concomitant]
  12. LANTUS [Concomitant]
  13. ZOFRAN [Concomitant]
  14. BACTRIM DS [Concomitant]

REACTIONS (1)
  - SUNBURN [None]
